FAERS Safety Report 4644842-6 (Version None)
Quarter: 2005Q2

REPORT INFORMATION
  Report Type: 
  Country: None (occurrence: None)
  Receive Date: 20050426
  Receipt Date: 20050131
  Transmission Date: 20051028
  Serious: Yes (Hospitalization, Disabling)
  Sender: FDA-Public Use
  Company Number: US-MERCK-0502USA00080

PATIENT
  Age: 59 Year
  Sex: Male
  Weight: 77 kg

DRUGS (7)
  1. VIOXX [Suspect]
     Indication: BACK PAIN
     Route: 048
     Dates: start: 19990101, end: 20030301
  2. VIOXX [Suspect]
     Route: 048
     Dates: start: 19990101, end: 20030301
  3. VIOXX [Suspect]
     Route: 048
     Dates: start: 19990101, end: 20030301
  4. VIOXX [Suspect]
     Indication: ARTHRALGIA
     Route: 048
     Dates: start: 19990101, end: 20030301
  5. VIOXX [Suspect]
     Route: 048
     Dates: start: 19990101, end: 20030301
  6. VIOXX [Suspect]
     Route: 048
     Dates: start: 19990101, end: 20030301
  7. SYNTHROID [Concomitant]
     Route: 065
     Dates: start: 19900101

REACTIONS (13)
  - ANXIETY [None]
  - BLOOD CHOLESTEROL INCREASED [None]
  - BLOOD TRIGLYCERIDES INCREASED [None]
  - CARDIAC FAILURE CONGESTIVE [None]
  - CARDIAC MURMUR [None]
  - CARDIAC VALVE DISEASE [None]
  - CORONARY ARTERY DISEASE [None]
  - DYSPEPSIA [None]
  - HEART RATE IRREGULAR [None]
  - HYPERTENSION [None]
  - MYOCARDIAL INFARCTION [None]
  - PRESCRIBED OVERDOSE [None]
  - THYROID DISORDER [None]
